FAERS Safety Report 19375184 (Version 6)
Quarter: 2021Q3

REPORT INFORMATION
  Report Type: Report from Study
  Country: CA (occurrence: CA)
  Receive Date: 20210604
  Receipt Date: 20210831
  Transmission Date: 20211014
  Serious: Yes (Other)
  Sender: FDA-Public Use
  Company Number: CA-JNJFOC-20210452080

PATIENT
  Age: 17 Year
  Sex: Female
  Weight: 59.5 kg

DRUGS (2)
  1. REMICADE [Suspect]
     Active Substance: INFLIXIMAB
     Indication: CROHN^S DISEASE
     Dosage: ON 26?APR?2021, THE PATIENT RECEIVED 73RD INFLIXIMAB INFUSION FOR DOSE OF 500 MG ONCE IN 5 WEEK AND
     Route: 042
     Dates: start: 20120924
  2. REMICADE [Suspect]
     Active Substance: INFLIXIMAB
     Dosage: THE PATIENT ADMINISTERED 77TH INFUSION OF 600 MG (10MG/KG) ON 17?AUG?2021.
     Route: 042
     Dates: start: 20120924, end: 20210817

REACTIONS (10)
  - Decreased appetite [Unknown]
  - Off label use [Unknown]
  - Dyspepsia [Unknown]
  - General physical health deterioration [Unknown]
  - Incorrect drug administration rate [Unknown]
  - Weight decreased [Unknown]
  - Diarrhoea [Unknown]
  - Abdominal pain [Unknown]
  - Constipation [Unknown]
  - Haematochezia [Unknown]

NARRATIVE: CASE EVENT DATE: 20210425
